FAERS Safety Report 24449865 (Version 2)
Quarter: 2024Q4

REPORT INFORMATION
  Report Type: Spontaneous
  Country: JP (occurrence: JP)
  Receive Date: 20241017
  Receipt Date: 20241031
  Transmission Date: 20250115
  Serious: Yes (Other)
  Sender: GENMAB
  Company Number: JP-GENMAB-2024-03737

PATIENT
  Age: 8 Decade
  Sex: Female

DRUGS (5)
  1. EPKINLY [Suspect]
     Active Substance: EPCORITAMAB-BYSP
     Indication: Richter^s syndrome
     Dosage: 0.16 MILLIGRAM, SINGLE, DAY1
     Route: 065
     Dates: start: 20240625, end: 20240625
  2. EPKINLY [Suspect]
     Active Substance: EPCORITAMAB-BYSP
     Dosage: 0.8 MILLIGRAM, SINGLE, DAY8
     Route: 065
     Dates: start: 20240702, end: 20240702
  3. EPKINLY [Suspect]
     Active Substance: EPCORITAMAB-BYSP
     Dosage: 48 MILLIGRAM, FROM DAY22
     Route: 065
     Dates: start: 20240716
  4. DEXAMETHASONE [Concomitant]
     Active Substance: DEXAMETHASONE
     Indication: Premedication
     Dosage: UNK, FROM DAY1 TO DAY 4 OF THE FIRST, SECOND, THIRD AND FOURTH ADMINISTRATION OF EPKINLY
     Dates: start: 20240625, end: 20240726
  5. DEXAMETHASONE [Concomitant]
     Active Substance: DEXAMETHASONE
     Indication: Immune effector cell-associated neurotoxicity syndrome
     Dosage: UNK, ON DAY24, DOSE INCREASED
     Dates: start: 20240718, end: 20240718

REACTIONS (6)
  - Richter^s syndrome [Unknown]
  - Cytokine release syndrome [Recovered/Resolved]
  - Immune effector cell-associated neurotoxicity syndrome [Recovered/Resolved]
  - Immune effector cell-associated neurotoxicity syndrome [Recovering/Resolving]
  - Full blood count decreased [Unknown]
  - Herpes zoster [Unknown]

NARRATIVE: CASE EVENT DATE: 20240101
